FAERS Safety Report 7748108-7 (Version None)
Quarter: 2011Q3

REPORT INFORMATION
  Report Type: 
  Country: None (occurrence: None)
  Receive Date: 20110913
  Receipt Date: 20110520
  Transmission Date: 20111222
  Serious: No
  Sender: FDA-Public Use
  Company Number: US-ALLERGAN-1106946US

PATIENT
  Age: 17 Year
  Sex: Female

DRUGS (3)
  1. TETRACYCLINE [Concomitant]
     Indication: ACNE
     Dosage: 500 MG, QD
     Route: 048
  2. ACZONE [Suspect]
     Indication: ACNE
     Dosage: 1 APPLICATION APPLIED TOPICALLY TO THE FACE AND BACK TWICE DAILY
     Route: 061
     Dates: end: 20110519
  3. RETIN-A [Concomitant]
     Indication: ACNE
     Dosage: 1 DF, QOD
     Route: 061

REACTIONS (4)
  - DYSPNOEA [None]
  - BACK PAIN [None]
  - OROPHARYNGEAL PAIN [None]
  - CHEST PAIN [None]
